FAERS Safety Report 10060628 (Version 2)
Quarter: 2014Q2

REPORT INFORMATION
  Report Type: Spontaneous
  Country: FI (occurrence: FI)
  Receive Date: 20140404
  Receipt Date: 20140404
  Transmission Date: 20141212
  Serious: Yes (Hospitalization, Other)
  Sender: FDA-Public Use
  Company Number: FI-BAXTER-2014BAX015604

PATIENT
  Age: 80 Year
  Sex: Male
  Weight: 93 kg

DRUGS (9)
  1. NATRIUMKLORID BAXTER VIAFLO 9 MG/ML INFUUSIONESTE, LIUO S [Suspect]
     Indication: POSTOPERATIVE ANALGESIA
     Route: 065
     Dates: start: 20140310
  2. NATRIUMKLORID BAXTER VIAFLO 9 MG/ML INFUUSIONESTE, LIUOS [Suspect]
     Indication: PAIN
  3. OXYCODONE [Suspect]
     Indication: PAIN
     Dosage: 10/5 MG
     Route: 048
     Dates: start: 20140310
  4. PARACETAMOL [Suspect]
     Indication: PRODUCT USED FOR UNKNOWN INDICATION
     Route: 042
     Dates: start: 20140310
  5. OXANEST [Suspect]
     Indication: POSTOPERATIVE ANALGESIA
     Route: 065
     Dates: start: 20140310
  6. OXANEST [Suspect]
     Indication: PAIN
  7. DEHYDROBENZPERIDOL [Suspect]
     Indication: POSTOPERATIVE ANALGESIA
     Route: 065
     Dates: start: 20140310
  8. DEHYDROBENZPERIDOL [Suspect]
     Indication: PAIN
  9. OXYNORM [Suspect]
     Indication: PAIN
     Route: 042
     Dates: start: 20140310, end: 20140310

REACTIONS (7)
  - Accidental overdose [Recovered/Resolved]
  - Depressed level of consciousness [Recovered/Resolved]
  - Hypercapnia [Recovered/Resolved]
  - Skin discolouration [Recovered/Resolved]
  - Respiratory rate decreased [Recovered/Resolved]
  - Miosis [Recovered/Resolved]
  - Device infusion issue [Recovered/Resolved]
